FAERS Safety Report 12509022 (Version 1)
Quarter: 2016Q2

REPORT INFORMATION
  Report Type: Spontaneous
  Country: SA (occurrence: SA)
  Receive Date: 20160629
  Receipt Date: 20160629
  Transmission Date: 20160815
  Serious: Yes (Hospitalization)
  Sender: FDA-Public Use
  Company Number: SA-GEMINI LABORATORIES, LLC-GEM201606-000002

PATIENT
  Age: 28 Year
  Sex: Male

DRUGS (6)
  1. OXANDROLONE. [Suspect]
     Active Substance: OXANDROLONE
     Indication: MUSCLE BUILDING THERAPY
  2. TRENABOL [Suspect]
     Active Substance: TRENBOLONE
     Indication: MUSCLE BUILDING THERAPY
  3. CYTOMEL [Suspect]
     Active Substance: LIOTHYRONINE SODIUM
     Indication: MUSCLE BUILDING THERAPY
  4. STANOZOLOL [Suspect]
     Active Substance: STANOZOLOL
     Indication: MUSCLE BUILDING THERAPY
  5. CLENBUTEROL [Suspect]
     Active Substance: CLENBUTEROL
     Indication: MUSCLE BUILDING THERAPY
  6. BOLDENONE UNDECYCLENATE [Suspect]
     Active Substance: BOLDENONE
     Indication: MUSCLE BUILDING THERAPY

REACTIONS (2)
  - Acute kidney injury [Recovered/Resolved]
  - Cholestasis [Recovered/Resolved]
